FAERS Safety Report 11124972 (Version 1)
Quarter: 2015Q2

REPORT INFORMATION
  Report Type: Spontaneous
  Country: SE (occurrence: SE)
  Receive Date: 20150520
  Receipt Date: 20150520
  Transmission Date: 20150821
  Serious: Yes (Death)
  Sender: FDA-Public Use
  Company Number: SE-ACTAVIS-2015-10272

PATIENT
  Age: 22 Month
  Sex: Male

DRUGS (2)
  1. ERYTHROMYCIN. [Concomitant]
     Active Substance: ERYTHROMYCIN
     Indication: RESPIRATORY SYMPTOM
     Dosage: UNK
     Route: 065
  2. IBUPROFEN (UNKNOWN) [Suspect]
     Active Substance: IBUPROFEN
     Indication: RESPIRATORY SYMPTOM
     Dosage: NORMAL DOSE
     Route: 065

REACTIONS (1)
  - Reye^s syndrome [Fatal]
